FAERS Safety Report 24150652 (Version 1)
Quarter: 2024Q3

REPORT INFORMATION
  Report Type: Spontaneous
  Country: US (occurrence: US)
  Receive Date: 20240730
  Receipt Date: 20240730
  Transmission Date: 20241017
  Serious: No
  Sender: TEVA
  Company Number: US-TEVA-VS-3221250

PATIENT
  Age: 47 Year
  Sex: Female

DRUGS (14)
  1. AJOVY [Suspect]
     Active Substance: FREMANEZUMAB-VFRM
     Indication: Migraine
     Dosage: 225/1.5 MG/ML,  STARTED AJOVY FOUR MONTHS AGO
     Route: 065
     Dates: start: 202404
  2. BOTOX [Concomitant]
     Active Substance: ONABOTULINUMTOXINA
     Indication: Migraine
  3. AMERGE [Concomitant]
     Active Substance: NARATRIPTAN HYDROCHLORIDE
  4. UBRELVY [Concomitant]
     Active Substance: UBROGEPANT
  5. ADVIL [Concomitant]
     Active Substance: IBUPROFEN\IBUPROFEN SODIUM
     Dosage: AS NEEDED
  6. ALEVE [Concomitant]
     Active Substance: NAPROXEN SODIUM
     Dosage: AS NEEDED
  7. TYLENOL [Concomitant]
     Active Substance: ACETAMINOPHEN
     Dosage: AS NEEDED
  8. CLARITIN [Concomitant]
     Active Substance: LORATADINE
  9. FLEXERIL [Concomitant]
     Active Substance: CYCLOBENZAPRINE HYDROCHLORIDE
     Indication: Dysmenorrhoea
     Dosage: AS NEEDED
  10. ATIVAN [Concomitant]
     Active Substance: LORAZEPAM
     Indication: Panic attack
     Dosage: AS NEEDED, ^WHICH I HAVEN^T NEEDED IN MONTHS^
  11. EMERGEN-C [Concomitant]
     Active Substance: VITAMINS
  12. RIBOFLAVIN [Concomitant]
     Active Substance: RIBOFLAVIN
  13. MAGNESIUM [Concomitant]
     Active Substance: MAGNESIUM
  14. COENZYME Q10 [Concomitant]
     Active Substance: DIETARY SUPPLEMENT\UBIDECARENONE

REACTIONS (3)
  - Injection site bruising [Not Recovered/Not Resolved]
  - Injection site mass [Recovering/Resolving]
  - Injection site erythema [Recovered/Resolved]

NARRATIVE: CASE EVENT DATE: 20240701
